FAERS Safety Report 7974143-X (Version None)
Quarter: 2011Q4

REPORT INFORMATION
  Report Type: 
  Country: None (occurrence: None)
  Receive Date: 20111213
  Receipt Date: 20111209
  Transmission Date: 20120403
  Serious: No
  Sender: FDA-Public Use
  Company Number: US-PFIZER INC-2011301246

PATIENT
  Sex: Female
  Weight: 72.56 kg

DRUGS (6)
  1. LISINOPRIL [Concomitant]
     Indication: HYPERTENSION
     Dosage: 5 MG, DAILY
  2. ASPIRIN [Concomitant]
     Indication: MYOCARDIAL INFARCTION
  3. LIPITOR [Suspect]
     Indication: CORONARY ARTERY BYPASS
     Dosage: 20 MG, DAILY
     Dates: start: 20110101
  4. ASPIRIN [Concomitant]
     Indication: CORONARY ARTERY BYPASS
     Dosage: 81 MG, DAILY
     Dates: start: 20110101
  5. LIPITOR [Suspect]
     Indication: MYOCARDIAL INFARCTION
  6. METOPROLOL [Concomitant]
     Dosage: 25 MG, 2X/DAY

REACTIONS (1)
  - MUSCULAR WEAKNESS [None]
